FAERS Safety Report 9190696 (Version 6)
Quarter: 2014Q1

REPORT INFORMATION
  Report Type: Spontaneous
  Country: GB (occurrence: GB)
  Receive Date: 20130326
  Receipt Date: 20140319
  Transmission Date: 20141002
  Serious: Yes (Life-Threatening, Hospitalization, Disabling, Other)
  Sender: FDA-Public Use
  Company Number: GB-NOVOPROD-373613

PATIENT
  Age: 62 Year
  Sex: Female
  Weight: 62 kg

DRUGS (20)
  1. NOVOMIX 30 FLEXPEN [Suspect]
     Indication: TYPE 2 DIABETES MELLITUS
     Dosage: UNK
     Route: 065
     Dates: start: 201112
  2. NOVOMIX 30 FLEXPEN [Suspect]
     Dosage: ^8 (NOS) IN THE MORNING AND 6 (NOS) IN THE EVENING^.
     Route: 065
     Dates: start: 2012
  3. INSULATARD [Suspect]
     Indication: TYPE 2 DIABETES MELLITUS
     Dosage: UNK
     Route: 065
     Dates: start: 201203
  4. NOVOMIX 30 PENFILL [Suspect]
     Indication: TYPE 2 DIABETES MELLITUS
     Dosage: 34 IU, QD (16 IU AM 18 IU PM)
     Dates: start: 20130717, end: 20131120
  5. NOVOMIX 30 PENFILL [Suspect]
     Indication: DIABETIC NEUROPATHY
     Dosage: 10UNITS IN THE MORNING AND 8UNITS AT NIGHT.
  6. NOVOMIX 30 PENFILL [Suspect]
     Indication: DIABETIC RETINOPATHY
     Dosage: 20 ML, QD (12ML AM + 8ML PM)
     Dates: start: 201204
  7. NOVOMIX 30 PENFILL [Suspect]
     Dosage: 10 + 8
     Route: 051
     Dates: start: 201307, end: 201307
  8. NOVOMIX 30 PENFILL [Suspect]
     Dosage: 8 + 6
     Route: 051
     Dates: start: 201308, end: 201308
  9. NOVOMIX 30 PENFILL [Suspect]
     Dosage: 8 AND 6
     Route: 051
     Dates: start: 201309, end: 201309
  10. NOVOMIX 30 PENFILL [Suspect]
     Dosage: 8 AND 6
     Route: 051
     Dates: start: 201310, end: 201310
  11. NOVOMIX 30 PENFILL [Suspect]
     Dosage: 8 AND 6
     Route: 051
     Dates: start: 201311
  12. METFORMIN [Concomitant]
     Indication: TYPE 2 DIABETES MELLITUS
     Dosage: 1000 MG, QD
     Dates: start: 1980
  13. OMEPRAZOLE [Concomitant]
  14. DOMPERIDONE [Concomitant]
     Indication: VOMITING
  15. PARACETAMOL [Concomitant]
     Indication: PRODUCT USED FOR UNKNOWN INDICATION
     Dosage: 500 MG, QD
  16. SODIUM [Concomitant]
     Indication: PRODUCT USED FOR UNKNOWN INDICATION
  17. ERGOCALCIFEROL [Concomitant]
     Indication: PRODUCT USED FOR UNKNOWN INDICATION
     Dosage: 1.25 MG, QD
  18. METOCLOPRAMIDE [Concomitant]
     Indication: PRODUCT USED FOR UNKNOWN INDICATION
     Dosage: UNK
  19. QUININE SULPHATE [Concomitant]
     Indication: PRODUCT USED FOR UNKNOWN INDICATION
     Dosage: UNK
  20. SIMVASTATIN [Concomitant]

REACTIONS (29)
  - Vomiting [Not Recovered/Not Resolved]
  - Mood swings [Not Recovered/Not Resolved]
  - Condition aggravated [Unknown]
  - Dyspnoea [Not Recovered/Not Resolved]
  - Gait disturbance [Not Recovered/Not Resolved]
  - Fatigue [Not Recovered/Not Resolved]
  - Retinopathy [Not Recovered/Not Resolved]
  - Visual acuity reduced [Not Recovered/Not Resolved]
  - Vomiting [Recovered/Resolved]
  - Diarrhoea [Recovered/Resolved]
  - Eye haemorrhage [Unknown]
  - Nausea [Not Recovered/Not Resolved]
  - Neuropathy peripheral [Unknown]
  - Vitreous haemorrhage [Unknown]
  - Swelling [Not Recovered/Not Resolved]
  - Product quality issue [Unknown]
  - Nausea [Not Recovered/Not Resolved]
  - Malaise [Unknown]
  - Swelling face [Unknown]
  - Feeling hot [Unknown]
  - Alopecia [Unknown]
  - Hypoaesthesia [Unknown]
  - Diarrhoea [Unknown]
  - Impatience [Unknown]
  - Blood glucose abnormal [Unknown]
  - Vomiting [Unknown]
  - Decreased appetite [Unknown]
  - Weight decreased [Unknown]
  - Drug dose omission [Unknown]
